FAERS Safety Report 5109519-1 (Version None)
Quarter: 2006Q3

REPORT INFORMATION
  Report Type: 
  Country: None (occurrence: None)
  Receive Date: 20060918
  Receipt Date: 20060904
  Transmission Date: 20061208
  Serious: Yes (Hospitalization)
  Sender: FDA-Public Use
  Company Number: 2006107491

PATIENT
  Age: 58 Year
  Sex: Male
  Weight: 70.1 kg

DRUGS (3)
  1. SUTENT [Suspect]
     Indication: RENAL CELL CARCINOMA STAGE UNSPECIFIED
     Dosage: SEE IMAGE, ORAL
     Route: 048
     Dates: start: 20060328, end: 20060412
  2. SUTENT [Suspect]
     Indication: RENAL CELL CARCINOMA STAGE UNSPECIFIED
     Dosage: SEE IMAGE, ORAL
     Route: 048
     Dates: start: 20060417
  3. SUTENT [Suspect]
     Indication: RENAL CELL CARCINOMA STAGE UNSPECIFIED
     Dosage: SEE IMAGE, ORAL
     Route: 048
     Dates: start: 20060808

REACTIONS (10)
  - ANAL ULCER [None]
  - APHAGIA [None]
  - BACTERIAL INFECTION [None]
  - HAEMATEMESIS [None]
  - INFECTED SKIN ULCER [None]
  - MALAISE [None]
  - NAUSEA [None]
  - PERIPROCTITIS [None]
  - PYREXIA [None]
  - VOMITING [None]
